FAERS Safety Report 23701322 (Version 2)
Quarter: 2024Q3

REPORT INFORMATION
  Report Type: Spontaneous
  Country: US (occurrence: US)
  Receive Date: 20240403
  Receipt Date: 20240829
  Transmission Date: 20241016
  Serious: Yes (Other)
  Sender: BOSTON SCIENTIFIC
  Company Number: US-BSC-2024000022

PATIENT
  Sex: Female

DRUGS (1)
  1. VARITHENA [Suspect]
     Active Substance: POLIDOCANOL
     Indication: Product used for unknown indication

REACTIONS (3)
  - Clostridium difficile infection [Unknown]
  - Headache [Recovered/Resolved]
  - Dizziness [Recovered/Resolved]
